FAERS Safety Report 24465211 (Version 1)
Quarter: 2024Q4

REPORT INFORMATION
  Report Type: Report from Study
  Country: US (occurrence: US)
  Receive Date: 20241018
  Receipt Date: 20241018
  Transmission Date: 20250115
  Serious: No
  Sender: ROCHE
  Company Number: US-ROCHE-3512948

PATIENT
  Age: 65 Year
  Sex: Female

DRUGS (16)
  1. XOLAIR [Suspect]
     Active Substance: OMALIZUMAB
     Indication: Idiopathic urticaria
     Dosage: ANTICIPATED DATE OF TREATMNET; 29/FEB/2024
     Route: 058
     Dates: start: 20200415
  2. XOLAIR [Suspect]
     Active Substance: OMALIZUMAB
     Indication: Nasal congestion
  3. XOLAIR [Suspect]
     Active Substance: OMALIZUMAB
     Indication: Urticaria chronic
  4. XOLAIR [Suspect]
     Active Substance: OMALIZUMAB
     Indication: Seasonal allergy
  5. XOLAIR [Suspect]
     Active Substance: OMALIZUMAB
     Indication: Pruritus
  6. XOLAIR [Suspect]
     Active Substance: OMALIZUMAB
     Indication: Rhinitis allergic
  7. ZYRTEC [Concomitant]
     Active Substance: CETIRIZINE HYDROCHLORIDE
  8. SINGULAIR [Concomitant]
     Active Substance: MONTELUKAST SODIUM
  9. PEPCID [Concomitant]
     Active Substance: FAMOTIDINE
  10. HYDROXYZINE [Concomitant]
     Active Substance: HYDROXYZINE HYDROCHLORIDE
  11. CELEBREX [Concomitant]
     Active Substance: CELECOXIB
  12. ATORVASTATIN [Concomitant]
     Active Substance: ATORVASTATIN
  13. METRONIDAZOLE [Concomitant]
     Active Substance: METRONIDAZOLE
  14. CIPROFLOXACIN [Concomitant]
     Active Substance: CIPROFLOXACIN
  15. CELECOXIB [Concomitant]
     Active Substance: CELECOXIB
  16. CLOBETASOL [Concomitant]
     Active Substance: CLOBETASOL

REACTIONS (8)
  - Upper-airway cough syndrome [Unknown]
  - Pruritus [Unknown]
  - Cataract [Unknown]
  - Lacrimation increased [Unknown]
  - Eye discharge [Unknown]
  - Nasal congestion [Unknown]
  - Rhinorrhoea [Unknown]
  - Arthritis [Unknown]
